FAERS Safety Report 19829554 (Version 1)
Quarter: 2021Q3

REPORT INFORMATION
  Report Type: Spontaneous
  Country: US (occurrence: US)
  Receive Date: 20210914
  Receipt Date: 20210914
  Transmission Date: 20211014
  Serious: Yes (Hospitalization, Other)
  Sender: FDA-Public Use
  Company Number: US-BAYER-2021-204473

PATIENT
  Age: 40 Year
  Sex: Female
  Weight: 52.2 kg

DRUGS (5)
  1. TADALAFIL. [Concomitant]
     Active Substance: TADALAFIL
  2. LASIX [Concomitant]
     Active Substance: FUROSEMIDE
  3. REMODULIN [Suspect]
     Active Substance: TREPROSTINIL
     Indication: PULMONARY ARTERIAL HYPERTENSION
     Dosage: UNK
     Route: 030
     Dates: start: 20200114
  4. CIPRO [Suspect]
     Active Substance: CIPROFLOXACIN HYDROCHLORIDE
  5. AMBRISENTAN [Concomitant]
     Active Substance: AMBRISENTAN

REACTIONS (15)
  - Balance disorder [None]
  - Ageusia [None]
  - Abdominal pain upper [None]
  - Anosmia [None]
  - Diarrhoea [None]
  - Pyrexia [None]
  - Vision blurred [None]
  - COVID-19 [None]
  - Vascular device infection [None]
  - Nausea [None]
  - Device infusion issue [None]
  - Vomiting [None]
  - Rash macular [None]
  - Anxiety [None]
  - Headache [None]

NARRATIVE: CASE EVENT DATE: 20210813
